FAERS Safety Report 7533262-2 (Version None)
Quarter: 2011Q2

REPORT INFORMATION
  Report Type: 
  Country: None (occurrence: None)
  Receive Date: 20110608
  Receipt Date: 20050919
  Transmission Date: 20111010
  Serious: Yes (Hospitalization)
  Sender: FDA-Public Use
  Company Number: PHFR2005GB02041

PATIENT
  Sex: Female

DRUGS (1)
  1. CLOZAPINE [Suspect]
     Indication: SCHIZOPHRENIA
     Dosage: UNK, UNK
     Route: 048
     Dates: start: 20020916

REACTIONS (6)
  - SPEECH DISORDER [None]
  - WHITE BLOOD CELL COUNT INCREASED [None]
  - DYSPHAGIA [None]
  - NEUTROPHIL COUNT INCREASED [None]
  - TONSILLITIS [None]
  - OROPHARYNGEAL PAIN [None]
